FAERS Safety Report 9614395 (Version 2)
Quarter: 2014Q1

REPORT INFORMATION
  Report Type: Report from Study
  Country: US (occurrence: US)
  Receive Date: 20131011
  Receipt Date: 20140124
  Transmission Date: 20141002
  Serious: Yes (Hospitalization)
  Sender: FDA-Public Use
  Company Number: US-JNJFOC-20131002535

PATIENT
  Sex: Female
  Weight: 65.77 kg

DRUGS (4)
  1. REMICADE [Suspect]
     Indication: OSTEOARTHRITIS
     Route: 042
     Dates: start: 2012
  2. REMICADE [Suspect]
     Indication: OSTEOARTHRITIS
     Route: 042
     Dates: start: 201210
  3. REMICADE [Suspect]
     Indication: RHEUMATOID ARTHRITIS
     Route: 042
     Dates: start: 2012
  4. REMICADE [Suspect]
     Indication: RHEUMATOID ARTHRITIS
     Route: 042
     Dates: start: 201210

REACTIONS (9)
  - Hernia [Recovered/Resolved]
  - Wound complication [Recovered/Resolved]
  - Skin graft rejection [Recovered/Resolved]
  - Incision site infection [Recovered/Resolved]
  - Impaired healing [Not Recovered/Not Resolved]
  - Infection [Recovered/Resolved]
  - Intestinal obstruction [Recovered/Resolved]
  - Wound [Recovered/Resolved]
  - Off label use [Not Recovered/Not Resolved]
